FAERS Safety Report 14652847 (Version 1)
Quarter: 2018Q1

REPORT INFORMATION
  Report Type: Report from Study
  Country: IT (occurrence: IT)
  Receive Date: 20180319
  Receipt Date: 20180319
  Transmission Date: 20180509
  Serious: Yes (Other)
  Sender: FDA-Public Use
  Company Number: IT-ROCHE-1992438

PATIENT
  Age: 69 Year
  Sex: Female
  Weight: 105 kg

DRUGS (3)
  1. CARBOPLATIN. [Suspect]
     Active Substance: CARBOPLATIN
     Indication: TRIPLE NEGATIVE BREAST CANCER
     Dosage: NUMBER OF COURSES 2, AUC 2 PER PROTOCOL, ON DAY 1 AND DAY 8, OF 21 DAY CYCLE?MOST RECENT DOSE ADMINI
     Route: 042
     Dates: start: 20170724
  2. ATEZOLIZUMAB. [Suspect]
     Active Substance: ATEZOLIZUMAB
     Indication: TRIPLE NEGATIVE BREAST CANCER
     Dosage: NUMBER OF COURSES 2?MOST RECENT DOSE ADMINISTERED 1200MG ON 16/AUG/2017
     Route: 042
     Dates: start: 20170724
  3. NAB-PACLITAXEL [Suspect]
     Active Substance: PACLITAXEL
     Indication: TRIPLE NEGATIVE BREAST CANCER
     Dosage: 1, 8 OF 21 DAYS CYCLE, NUMBER OF COURSES 2?MOST RECENT DOSE ADMINISTERD: 250MG?MOST RECENT DOSE OF C
     Route: 042
     Dates: start: 20170724

REACTIONS (1)
  - Coombs positive haemolytic anaemia [Recovered/Resolved]

NARRATIVE: CASE EVENT DATE: 20170823
